FAERS Safety Report 5102539-2 (Version None)
Quarter: 2006Q3

REPORT INFORMATION
  Report Type: 
  Country: None (occurrence: None)
  Receive Date: 20060912
  Receipt Date: 20060811
  Transmission Date: 20061208
  Serious: Yes (Death, Life-Threatening, Hospitalization, Other)
  Sender: FDA-Public Use
  Company Number: ZA-AVENTIS-200614324EU

PATIENT
  Age: 73 Year
  Sex: Female

DRUGS (15)
  1. ENOXAPARIN SODIUM [Suspect]
     Indication: HIP ARTHROPLASTY
     Route: 058
     Dates: start: 20060703, end: 20060703
  2. ENOXAPARIN SODIUM [Suspect]
     Indication: POSTOPERATIVE CARE
     Route: 058
     Dates: start: 20060703, end: 20060703
  3. ENOXAPARIN SODIUM [Suspect]
     Indication: THROMBOSIS PROPHYLAXIS
     Route: 058
     Dates: start: 20060703, end: 20060703
  4. ENOXAPARIN SODIUM [Suspect]
     Route: 058
     Dates: start: 20060704, end: 20060706
  5. VOLTAREN [Concomitant]
     Indication: PAIN
     Route: 048
  6. PHARMAPRESS [Concomitant]
     Indication: HYPERTENSION
     Route: 048
  7. DIGOXIN [Concomitant]
     Indication: HYPERTENSION
     Route: 048
  8. RIDAQ [Concomitant]
     Indication: HYPERTENSION
     Route: 048
  9. KEFZOL [Concomitant]
     Route: 042
     Dates: start: 20060704
  10. MORFINE [Concomitant]
     Indication: PAIN
     Route: 030
     Dates: start: 20060704
  11. ENALAPRIL [Concomitant]
     Indication: HYPERTENSION
     Route: 048
     Dates: start: 20060705, end: 20060706
  12. LOSEC [Concomitant]
     Route: 048
     Dates: start: 20060707
  13. ULSANIC [Concomitant]
     Route: 048
     Dates: start: 20060707
  14. ZINACEF [Concomitant]
     Route: 042
     Dates: start: 20060707
  15. FLAGYL ^AVENTIS^ [Concomitant]
     Route: 042
     Dates: start: 20060707

REACTIONS (11)
  - ACUTE ABDOMEN [None]
  - BLISTER [None]
  - DEATH [None]
  - DISSEMINATED INTRAVASCULAR COAGULATION [None]
  - EPISTAXIS [None]
  - HYPOGLYCAEMIA [None]
  - MOUTH HAEMORRHAGE [None]
  - RECTAL HAEMORRHAGE [None]
  - RENAL FAILURE [None]
  - SHOCK [None]
  - WOUND HAEMORRHAGE [None]
